FAERS Safety Report 5900109-7 (Version None)
Quarter: 2008Q3

REPORT INFORMATION
  Report Type: 
  Country: None (occurrence: None)
  Receive Date: 20080924
  Receipt Date: 20080909
  Transmission Date: 20090109
  Serious: Yes (Other)
  Sender: FDA-Public Use
  Company Number: 2008S1016579

PATIENT
  Age: 25 Year
  Sex: Female

DRUGS (4)
  1. TIMOLOL MALEATE [Suspect]
     Indication: DRUG USE FOR UNKNOWN INDICATION
  2. LATANOPROST [Suspect]
     Indication: DRUG USE FOR UNKNOWN INDICATION
  3. DORZOLAMIDE [Suspect]
     Indication: DRUG USE FOR UNKNOWN INDICATION
  4. PILOCARPINE [Suspect]
     Indication: DRUG USE FOR UNKNOWN INDICATION

REACTIONS (7)
  - HYPHAEMA [None]
  - INTRAOCULAR LENS IMPLANT [None]
  - INTRAOCULAR PRESSURE INCREASED [None]
  - PHACOTRABECULECTOMY [None]
  - PHOTOCOAGULATION [None]
  - UVEITIS [None]
  - VISUAL ACUITY REDUCED [None]
